FAERS Safety Report 11156297 (Version 4)
Quarter: 2016Q1

REPORT INFORMATION
  Report Type: Spontaneous
  Country: US (occurrence: US)
  Receive Date: 20150602
  Receipt Date: 20160321
  Transmission Date: 20160525
  Serious: Yes (Death)
  Sender: FDA-Public Use
  Company Number: US-LUNDBECK-DKLU1113116

PATIENT
  Age: 87 Year
  Sex: Male

DRUGS (5)
  1. NORTHERA [Suspect]
     Active Substance: DROXIDOPA
     Indication: PARKINSON^S DISEASE
     Route: 048
     Dates: start: 20141110
  2. DONEPEZIL. [Concomitant]
     Active Substance: DONEPEZIL
     Indication: DEMENTIA
     Route: 065
     Dates: start: 20130128, end: 20150519
  3. NORTHERA [Suspect]
     Active Substance: DROXIDOPA
     Route: 048
     Dates: end: 201503
  4. CARBIDOPA LEVODOPA [Concomitant]
     Active Substance: CARBIDOPA\LEVODOPA
     Indication: PARKINSON^S DISEASE
     Dosage: 50/200
     Route: 065
     Dates: start: 20120327, end: 20150519
  5. CARBIDOPA LEVODOPA [Concomitant]
     Active Substance: CARBIDOPA\LEVODOPA
     Dosage: 25/100, 12 TABS
     Route: 065
     Dates: start: 20120327, end: 20150519

REACTIONS (1)
  - Embolic stroke [Fatal]

NARRATIVE: CASE EVENT DATE: 20150513
